FAERS Safety Report 6590548-6 (Version None)
Quarter: 2010Q1

REPORT INFORMATION
  Report Type: 
  Country: None (occurrence: None)
  Receive Date: 20100219
  Receipt Date: 20100208
  Transmission Date: 20100710
  Serious: Yes (Hospitalization)
  Sender: FDA-Public Use
  Company Number: US-PFIZER INC-2007083961

PATIENT
  Sex: Male
  Weight: 79.8 kg

DRUGS (13)
  1. SUTENT [Suspect]
     Indication: HEPATIC NEOPLASM MALIGNANT
     Dosage: 37.5 MG, 1X/DAY FOR 4 WEEKS EVERY 6 WEEKS
     Route: 048
     Dates: start: 20070912, end: 20070928
  2. ATIVAN [Concomitant]
     Indication: NAUSEA
     Dosage: 1 TABLET EVERY 4-6 HOURS, AS NEEDED
     Route: 048
     Dates: start: 20071002
  3. COMPAZINE [Concomitant]
     Indication: NAUSEA
     Dosage: 1 TABLET EVERY 8 HOURS AS NEEDED
     Route: 048
     Dates: start: 20071002
  4. ZOFRAN [Concomitant]
     Indication: NAUSEA
     Dosage: 1 TABLET,EVERY 12 HOURS AS NEEDED
     Route: 048
     Dates: start: 20071002
  5. HUMALOG [Concomitant]
     Dosage: 100 UNITS/ML
     Route: 058
     Dates: start: 20070926
  6. HYDROCHLOROTHIAZIDE [Concomitant]
     Dosage: 1 TABLET
     Route: 048
     Dates: start: 20070926
  7. LANTUS [Concomitant]
     Dosage: 100 UNITS/ML
     Route: 058
     Dates: start: 20070926
  8. LISINOPRIL [Concomitant]
     Dosage: 1 TABLET
     Route: 048
     Dates: start: 20070926
  9. METOPROLOL SUCCINATE [Concomitant]
     Dosage: 1 TABLET
     Route: 048
     Dates: start: 20070926
  10. PRAVACHOL [Concomitant]
     Dosage: 1 TABLET
     Route: 048
     Dates: start: 20070926
  11. PRILOSEC [Concomitant]
  12. SPIRONOLACTONE [Concomitant]
     Dosage: 100 MG, 1X/DAY
     Route: 048
     Dates: start: 20071003
  13. ZANTAC [Concomitant]
     Dosage: 150 MG, 2X/DAY
     Route: 048
     Dates: start: 20071003

REACTIONS (27)
  - ASTHENIA [None]
  - ATAXIA [None]
  - BALANCE DISORDER [None]
  - BLOOD SODIUM DECREASED [None]
  - DEHYDRATION [None]
  - DIABETIC NEUROPATHY [None]
  - DIARRHOEA [None]
  - DIZZINESS [None]
  - DRUG TOXICITY [None]
  - FALL [None]
  - GAIT DISTURBANCE [None]
  - HALLUCINATION [None]
  - HYPOTENSION [None]
  - LEUKOPENIA [None]
  - NAUSEA [None]
  - NEURITIS [None]
  - NEUROLOGICAL EXAMINATION ABNORMAL [None]
  - NEUTROPENIA [None]
  - PRURITUS [None]
  - PYREXIA [None]
  - THROMBOCYTOPENIA [None]
  - TINNITUS [None]
  - TREMOR [None]
  - VERTIGO [None]
  - VESTIBULAR DISORDER [None]
  - WHEELCHAIR USER [None]
  - YELLOW SKIN [None]
